FAERS Safety Report 13707019 (Version 1)
Quarter: 2017Q2

REPORT INFORMATION
  Report Type: Spontaneous
  Country: US (occurrence: US)
  Receive Date: 20170630
  Receipt Date: 20170630
  Transmission Date: 20170830
  Serious: Yes (Other)
  Sender: FDA-Public Use
  Company Number: US-GLAXOSMITHKLINE-US2017GSK100439

PATIENT
  Sex: Female

DRUGS (2)
  1. BUPROPION SR [Suspect]
     Active Substance: BUPROPION HYDROCHLORIDE
     Indication: PRODUCT USED FOR UNKNOWN INDICATION
  2. WELLBUTRIN SR [Suspect]
     Active Substance: BUPROPION HYDROCHLORIDE
     Indication: PRODUCT USED FOR UNKNOWN INDICATION
     Dosage: 150 MG, BID
     Dates: start: 2001, end: 201612

REACTIONS (8)
  - Depressed mood [Unknown]
  - Drug ineffective [Unknown]
  - Nightmare [Unknown]
  - Tinnitus [Unknown]
  - Dizziness [Unknown]
  - Depression [Unknown]
  - Skin graft [Unknown]
  - Orthopaedic procedure [Unknown]
